FAERS Safety Report 17692530 (Version 1)
Quarter: 2020Q2

REPORT INFORMATION
  Report Type: Spontaneous
  Country: US (occurrence: US)
  Receive Date: 20200421
  Receipt Date: 20200421
  Transmission Date: 20200714
  Serious: Yes (Disabling)
  Sender: FDA-Public Use
  Company Number: None

PATIENT
  Age: 24 Year
  Sex: Female
  Weight: 58.5 kg

DRUGS (11)
  1. TOPIRAMATE. [Concomitant]
     Active Substance: TOPIRAMATE
  2. ELETRIPTAN. [Concomitant]
     Active Substance: ELETRIPTAN
  3. THYROID SUPPORT COMPLEX [Concomitant]
  4. MAGNESIUM [Concomitant]
     Active Substance: MAGNESIUM
  5. CYCLOBENZAPRINE. [Concomitant]
     Active Substance: CYCLOBENZAPRINE
  6. AJOVY [Suspect]
     Active Substance: FREMANEZUMAB-VFRM
     Indication: MIGRAINE
     Dosage: ?          QUANTITY:1 INJECTION(S);OTHER FREQUENCY:MONTHLY;?
     Route: 058
     Dates: start: 20200330, end: 20200330
  7. L-GLUTAMINE [Concomitant]
  8. D [Concomitant]
  9. EMGALITY [Concomitant]
     Active Substance: GALCANEZUMAB-GNLM
  10. B2 [Concomitant]
  11. VITAMIN B12 [Concomitant]
     Active Substance: CYANOCOBALAMIN

REACTIONS (9)
  - Injection site pain [None]
  - Arthralgia [None]
  - Injection site bruising [None]
  - Migraine [None]
  - Device difficult to use [None]
  - Therapy cessation [None]
  - Insurance issue [None]
  - Dizziness [None]
  - Neck pain [None]

NARRATIVE: CASE EVENT DATE: 20200330
